FAERS Safety Report 12415319 (Version 1)
Quarter: 2016Q2

REPORT INFORMATION
  Report Type: Spontaneous
  Country: US (occurrence: US)
  Receive Date: 20160530
  Receipt Date: 20160530
  Transmission Date: 20160815
  Serious: No
  Sender: FDA-Public Use
  Company Number: US-PFIZER INC-2016256167

PATIENT
  Age: 74 Year
  Sex: Female

DRUGS (1)
  1. IBRANCE [Suspect]
     Active Substance: PALBOCICLIB
     Indication: NEOPLASM MALIGNANT
     Dosage: 100 MG, CYCLIC (ONCE DAILY, 21 DAYS ON 7 DAYS OFF)
     Route: 048
     Dates: start: 20160317

REACTIONS (3)
  - Eye discharge [Unknown]
  - Nasal discomfort [Unknown]
  - Epistaxis [Unknown]
